FAERS Safety Report 7841747-4 (Version None)
Quarter: 2011Q4

REPORT INFORMATION
  Report Type: 
  Country: None (occurrence: None)
  Receive Date: 20111025
  Receipt Date: 20111014
  Transmission Date: 20120403
  Serious: Yes (Hospitalization)
  Sender: FDA-Public Use
  Company Number: US-JNJFOC-20111008384

PATIENT
  Sex: Female
  Weight: 90.72 kg

DRUGS (2)
  1. FENTANYL-100 [Suspect]
     Indication: SPINAL FUSION SURGERY
     Route: 062
     Dates: start: 20040101
  2. DURAGESIC-100 [Suspect]
     Indication: SPINAL FUSION SURGERY
     Route: 062
     Dates: start: 20111001

REACTIONS (5)
  - HYPOAESTHESIA [None]
  - INTERVERTEBRAL DISC DISORDER [None]
  - PRODUCT QUALITY ISSUE [None]
  - INTERVERTEBRAL DISC DEGENERATION [None]
  - WRONG TECHNIQUE IN DRUG USAGE PROCESS [None]
